FAERS Safety Report 13489403 (Version 1)
Quarter: 2017Q2

REPORT INFORMATION
  Report Type: Spontaneous
  Country: US (occurrence: US)
  Receive Date: 20170426
  Receipt Date: 20170426
  Transmission Date: 20170830
  Serious: No
  Sender: FDA-Public Use
  Company Number: US-ALKERMES INC.-ALK-2017-000987

PATIENT
  Age: 52 Year
  Sex: Female

DRUGS (2)
  1. VIVITROL [Suspect]
     Active Substance: NALTREXONE
     Indication: DRUG USE DISORDER
     Dosage: 380 MG, UNK
     Route: 030
     Dates: start: 20160907
  2. VIVITROL [Suspect]
     Active Substance: NALTREXONE
     Dosage: 380 MG, QMO
     Route: 030
     Dates: start: 20170301

REACTIONS (6)
  - Gastric disorder [Not Recovered/Not Resolved]
  - Back pain [Recovered/Resolved]
  - Injection site pain [Not Recovered/Not Resolved]
  - Sciatica [Recovered/Resolved]
  - Pain in extremity [Recovered/Resolved]
  - Injection site reaction [Not Recovered/Not Resolved]
